FAERS Safety Report 16334285 (Version 1)
Quarter: 2019Q2

REPORT INFORMATION
  Report Type: Spontaneous
  Country: JP (occurrence: JP)
  Receive Date: 20190520
  Receipt Date: 20190520
  Transmission Date: 20190711
  Serious: Yes (Other)
  Sender: FDA-Public Use
  Company Number: JP-PFIZER INC-2019203162

PATIENT
  Age: 74 Year
  Sex: Female

DRUGS (1)
  1. METHOTREXATE SODIUM. [Suspect]
     Active Substance: METHOTREXATE SODIUM
     Indication: RHEUMATIC DISORDER
     Dosage: 8 MG, DAILY FOR 10 CONSECUTIVE DAYS
     Route: 048

REACTIONS (4)
  - Overdose [Unknown]
  - Behcet^s syndrome [Unknown]
  - Pancytopenia [Unknown]
  - Stomatitis [Unknown]
